FAERS Safety Report 7479892-8 (Version None)
Quarter: 2011Q2

REPORT INFORMATION
  Report Type: 
  Country: None (occurrence: None)
  Receive Date: 20110516
  Receipt Date: 20110512
  Transmission Date: 20111010
  Serious: Yes (Hospitalization)
  Sender: FDA-Public Use
  Company Number: AT-BRISTOL-MYERS SQUIBB COMPANY-15740103

PATIENT
  Age: 78 Year
  Sex: Female

DRUGS (5)
  1. QUETIAPINE [Concomitant]
     Route: 048
  2. CARBAMAZEPINE [Concomitant]
     Dosage: 500MG IN THE EVENING + 300MG IN THE EVENING
     Route: 048
  3. ABILIFY [Suspect]
     Indication: DEPRESSION
     Dosage: 5MG STARTED ON 21JAN2011;INCREASED TO 10MG ON 27JAN2011;15MG:FEB2011
     Route: 048
     Dates: start: 20110121
  4. ABILIFY [Suspect]
     Indication: BIPOLAR DISORDER
     Dosage: 5MG STARTED ON 21JAN2011;INCREASED TO 10MG ON 27JAN2011;15MG:FEB2011
     Route: 048
     Dates: start: 20110121
  5. ESCITALOPRAM [Concomitant]

REACTIONS (2)
  - DEPRESSION [None]
  - HYPOMANIA [None]
